FAERS Safety Report 9525264 (Version 1)
Quarter: 2013Q1

REPORT INFORMATION
  Report Type: Spontaneous
  Country: US (occurrence: None)
  Receive Date: 20130314
  Receipt Date: 20130314
  Transmission Date: 20140127
  Serious: No
  Sender: FDA-Public Use
  Company Number: 1208USA009369

PATIENT
  Age: 52 Year
  Sex: Male

DRUGS (4)
  1. PEGINTRON [Suspect]
     Indication: HEPATITIS C
     Dates: start: 20120907, end: 20120914
  2. RIBAVIRIN [Suspect]
     Indication: HEPATITIS C
     Route: 048
     Dates: start: 20120817
  3. VICTRELIS [Suspect]
     Indication: HEPATITIS C
     Route: 048
     Dates: start: 20120915
  4. PEGASYS [Suspect]
     Indication: HEPATITIS C

REACTIONS (18)
  - Injection site erythema [None]
  - Application site pruritus [None]
  - Insomnia [None]
  - Hypersensitivity [None]
  - Dysgeusia [None]
  - Dermatitis allergic [None]
  - Injection site vesicles [None]
  - Anaemia [None]
  - No therapeutic response [None]
  - Cough [None]
  - Fatigue [None]
  - Injection site reaction [None]
  - Rash [None]
  - Dyspnoea [None]
  - Rash [None]
  - Memory impairment [None]
  - Alopecia [None]
  - Fatigue [None]
